FAERS Safety Report 9587108 (Version 1)
Quarter: 2013Q4

REPORT INFORMATION
  Report Type: Spontaneous
  Country: US (occurrence: US)
  Receive Date: 20131003
  Receipt Date: 20131003
  Transmission Date: 20140711
  Serious: No
  Sender: FDA-Public Use
  Company Number: US-009507513-1310USA001013

PATIENT
  Sex: Female

DRUGS (1)
  1. STROMECTOL [Suspect]

REACTIONS (1)
  - Drug ineffective [Unknown]
